FAERS Safety Report 9261269 (Version 4)
Quarter: 2013Q2

REPORT INFORMATION
  Report Type: Spontaneous
  Country: JP (occurrence: JP)
  Receive Date: 20130429
  Receipt Date: 20130530
  Transmission Date: 20140414
  Serious: Yes (Other)
  Sender: FDA-Public Use
  Company Number: JP-PFIZER INC-2013130473

PATIENT
  Age: 71 Year
  Sex: Female

DRUGS (2)
  1. LYRICA [Suspect]
     Indication: NEURALGIA
     Dosage: 75 MG, 2X/DAY
     Route: 048
     Dates: start: 20130307
  2. LOXONIN [Concomitant]
     Indication: CANCER PAIN
     Dosage: 180 MG, 1X/DAY
     Route: 048

REACTIONS (4)
  - Swelling face [Unknown]
  - Eye disorder [Unknown]
  - Eye pain [Unknown]
  - Oral pain [Unknown]
